FAERS Safety Report 4560057-4 (Version None)
Quarter: 2005Q1

REPORT INFORMATION
  Report Type: 
  Country: None (occurrence: None)
  Receive Date: 20050125
  Receipt Date: 20050113
  Transmission Date: 20050727
  Serious: Yes (Hospitalization, Other)
  Sender: FDA-Public Use
  Company Number: US-JNJFOC-20040501377

PATIENT
  Sex: Male

DRUGS (31)
  1. INFLIXIMAB [Suspect]
     Indication: RHEUMATOID ARTHRITIS
     Route: 042
  2. ISOSORBIDE DINITRATE [Concomitant]
  3. TOPROL-XL [Concomitant]
  4. ALLOPURINOL [Concomitant]
  5. LEVOTHYROXINE [Concomitant]
  6. PREDNISONE [Concomitant]
  7. PRAVACHOL [Concomitant]
  8. METHOTREXATE [Concomitant]
  9. FOLIC ACID [Concomitant]
  10. FOLIC ACID [Concomitant]
  11. CARDURA [Concomitant]
  12. CELEBREX [Concomitant]
  13. ASPIRIN [Concomitant]
  14. ASPIRIN [Concomitant]
  15. COUMADIN [Concomitant]
  16. COUMADIN [Concomitant]
  17. PROSCAR [Concomitant]
  18. NORVASC [Concomitant]
  19. VITAMIN E [Concomitant]
  20. MULTI-VITAMIN [Concomitant]
  21. MULTI-VITAMIN [Concomitant]
  22. MULTI-VITAMIN [Concomitant]
  23. MULTI-VITAMIN [Concomitant]
  24. MULTI-VITAMIN [Concomitant]
  25. MULTI-VITAMIN [Concomitant]
  26. MULTI-VITAMIN [Concomitant]
  27. MULTI-VITAMIN [Concomitant]
  28. THYROXINE [Concomitant]
  29. IMDUR [Concomitant]
  30. LEVOXYL [Concomitant]
  31. CALCIUM + D [Concomitant]

REACTIONS (4)
  - ANGINA UNSTABLE [None]
  - CORONARY ARTERY RESTENOSIS [None]
  - CORONARY ARTERY STENOSIS [None]
  - SKIN CANCER [None]
